FAERS Safety Report 13602329 (Version 1)
Quarter: 2017Q2

REPORT INFORMATION
  Report Type: Spontaneous
  Country: IL (occurrence: IL)
  Receive Date: 20170601
  Receipt Date: 20170601
  Transmission Date: 20170830
  Serious: Yes (Hospitalization)
  Sender: FDA-Public Use
  Company Number: IL-IMPAX LABORATORIES, INC-2017-IPXL-01575

PATIENT
  Age: 25 Year
  Sex: Male

DRUGS (4)
  1. LACOSAMIDE. [Suspect]
     Active Substance: LACOSAMIDE
     Indication: FRONTAL LOBE EPILEPSY
     Dosage: 350 MG, DAILY
     Route: 065
  2. LAMOTRIGINE ODT [Suspect]
     Active Substance: LAMOTRIGINE
     Indication: FRONTAL LOBE EPILEPSY
     Dosage: 200 MG, DAILY
     Route: 065
  3. DIVALPROEX SODIUM ER [Suspect]
     Active Substance: DIVALPROEX SODIUM
     Indication: FRONTAL LOBE EPILEPSY
     Dosage: 1250 MG, DAILY
     Route: 065
  4. CLOBAZAM [Suspect]
     Active Substance: CLOBAZAM
     Indication: FRONTAL LOBE EPILEPSY
     Dosage: 30 MG, DAILY
     Route: 065

REACTIONS (4)
  - Venous angioma of brain [Recovered/Resolved]
  - Encephalopathy [Recovered/Resolved]
  - Intellectual disability [Recovered/Resolved]
  - Ammonia increased [Recovered/Resolved]
